FAERS Safety Report 17368996 (Version 1)
Quarter: 2020Q1

REPORT INFORMATION
  Report Type: Spontaneous
  Country: US (occurrence: US)
  Receive Date: 20200120
  Receipt Date: 20200120
  Transmission Date: 20200409
  Serious: No
  Sender: FDA-Public Use
  Company Number: None

PATIENT
  Age: 46 Year
  Sex: Female

DRUGS (4)
  1. DULOXETINE. [Concomitant]
     Active Substance: DULOXETINE
  2. SPRYCEL [Suspect]
     Active Substance: DASATINIB
     Route: 048
     Dates: start: 20190313, end: 20200116
  3. ABILIFY [Concomitant]
     Active Substance: ARIPIPRAZOLE
  4. OXYBUTYNINN RD [Concomitant]

REACTIONS (3)
  - Disease progression [None]
  - Drug intolerance [None]
  - Therapy change [None]

NARRATIVE: CASE EVENT DATE: 20200120
